FAERS Safety Report 12440980 (Version 1)
Quarter: 2016Q2

REPORT INFORMATION
  Report Type: Spontaneous
  Country: GB (occurrence: GB)
  Receive Date: 20160607
  Receipt Date: 20160607
  Transmission Date: 20160815
  Serious: Yes (Other)
  Sender: FDA-Public Use
  Company Number: GB-009507513-1605GBR014043

PATIENT
  Age: 20 Year
  Sex: Female

DRUGS (1)
  1. ETONOGESTREL IMPLANT- UNKNOWN [Suspect]
     Active Substance: ETONOGESTREL
     Indication: CONTRACEPTION
     Route: 059

REACTIONS (6)
  - Haemorrhage [Unknown]
  - Placental disorder [Unknown]
  - Placenta accreta [Unknown]
  - Placenta praevia [Unknown]
  - Unintended pregnancy [Unknown]
  - Pregnancy with implant contraceptive [Recovered/Resolved]
